FAERS Safety Report 5169879-2 (Version None)
Quarter: 2006Q4

REPORT INFORMATION
  Report Type: 
  Country: None (occurrence: None)
  Receive Date: 20061212
  Receipt Date: 20060612
  Transmission Date: 20070319
  Serious: Yes (Other)
  Sender: FDA-Public Use
  Company Number: DE-ROCHE-451310

PATIENT
  Age: 36 Year
  Sex: Female
  Weight: 60 kg

DRUGS (1)
  1. TAMIFLU [Suspect]
     Indication: INFLUENZA
     Dosage: FORM REPROTED AS ^HARTKAPSLEN^.
     Route: 048
     Dates: start: 20030218, end: 20030223

REACTIONS (2)
  - DIPLOPIA [None]
  - VISUAL DISTURBANCE [None]
